FAERS Safety Report 9363244 (Version 1)
Quarter: 2013Q2

REPORT INFORMATION
  Report Type: Spontaneous
  Country: US (occurrence: None)
  Receive Date: 20130621
  Receipt Date: 20130621
  Transmission Date: 20140414
  Serious: No
  Sender: FDA-Public Use
  Company Number: None

PATIENT
  Age: 55 Year
  Sex: Male

DRUGS (3)
  1. CYTOXAN [Suspect]
     Indication: PLASMA CELL MYELOMA
     Dates: start: 20130611
  2. VELCADE [Suspect]
     Indication: PLASMA CELL MYELOMA
     Dates: start: 20130611
  3. DEXAMETHASONE [Suspect]

REACTIONS (3)
  - Fatigue [None]
  - Abasia [None]
  - Somnolence [None]
